FAERS Safety Report 4957362-6 (Version None)
Quarter: 2006Q1

REPORT INFORMATION
  Report Type: 
  Country: None (occurrence: None)
  Receive Date: 20060327
  Receipt Date: 20060320
  Transmission Date: 20060701
  Serious: Yes (Hospitalization)
  Sender: FDA-Public Use
  Company Number: 200611100GDS

PATIENT
  Sex: Male

DRUGS (1)
  1. CIPROFLOXACIN HCL [Suspect]
     Indication: SINUSITIS
     Dates: start: 20050727, end: 20050801

REACTIONS (4)
  - FLUID OVERLOAD [None]
  - HEPATIC FAILURE [None]
  - RENAL FAILURE [None]
  - RIGHT VENTRICULAR FAILURE [None]
